FAERS Safety Report 5800624-0 (Version None)
Quarter: 2008Q3

REPORT INFORMATION
  Report Type: 
  Country: None (occurrence: None)
  Receive Date: 20080703
  Receipt Date: 20080627
  Transmission Date: 20090109
  Serious: Yes (Hospitalization, Other)
  Sender: FDA-Public Use
  Company Number: US-AMGEN-US103989

PATIENT
  Sex: Female

DRUGS (5)
  1. ENBREL [Suspect]
     Indication: RHEUMATOID ARTHRITIS
     Route: 065
     Dates: start: 20041113
  2. ENBREL [Suspect]
     Route: 058
  3. SYNTHROID [Concomitant]
     Route: 065
  4. ESTRACE [Concomitant]
     Route: 065
  5. VITAMINS [Concomitant]
     Route: 065

REACTIONS (6)
  - INJECTION SITE IRRITATION [None]
  - INJECTION SITE PAIN [None]
  - PERICARDIAL EFFUSION [None]
  - PLEURAL EFFUSION [None]
  - PNEUMONIA [None]
  - RHEUMATOID ARTHRITIS [None]
